FAERS Safety Report 7348307-2 (Version None)
Quarter: 2011Q1

REPORT INFORMATION
  Report Type: 
  Country: None (occurrence: None)
  Receive Date: 20110311
  Receipt Date: 20110302
  Transmission Date: 20110831
  Serious: Yes (Hospitalization, Other)
  Sender: FDA-Public Use
  Company Number: US-ELI_LILLY_AND_COMPANY-US201103001147

PATIENT
  Sex: Female

DRUGS (7)
  1. SIMVASTATIN [Concomitant]
  2. FORTEO [Suspect]
     Indication: OSTEOPOROSIS
     Dosage: 20 UG, DAILY (1/D)
     Route: 065
     Dates: start: 20110131, end: 20110226
  3. HYDROCHLOROTHIAZIDE [Concomitant]
  4. CARVEDILOL [Concomitant]
  5. SYNTHROID [Concomitant]
  6. LISINOPRIL  /USA/ [Concomitant]
  7. ASPIRIN [Concomitant]
     Dosage: 81 MG, UNK

REACTIONS (6)
  - ATRIAL FIBRILLATION [None]
  - BLOOD POTASSIUM DECREASED [None]
  - BLOOD MAGNESIUM DECREASED [None]
  - FEAR [None]
  - DIZZINESS [None]
  - INFUSION SITE PAIN [None]
